FAERS Safety Report 8980179 (Version 1)
Quarter: 2012Q4

REPORT INFORMATION
  Report Type: 
  Country: GB (occurrence: GB)
  Receive Date: 20121221
  Receipt Date: 20121221
  Transmission Date: 20130627
  Serious: Yes (Death)
  Sender: FDA-Public Use
  Company Number: PHHY2012GB117786

PATIENT
  Age: 31 Year
  Sex: Male

DRUGS (7)
  1. QUETIAPINE [Suspect]
     Indication: DEPRESSION
     Dosage: 450 mg, QD in divided doses
     Route: 048
     Dates: start: 2011
  2. QUETIAPINE [Suspect]
     Dosage: Overdose: amount unknown
     Route: 048
     Dates: start: 20120824
  3. MIRTAZAPINE [Suspect]
     Indication: DEPRESSION
     Dosage: 45 mg, QD
     Route: 048
     Dates: start: 2012
  4. MIRTAZAPINE [Suspect]
     Dosage: Overdose: amount unknown
     Route: 048
     Dates: start: 20120824
  5. CIPRALEX [Suspect]
     Indication: DEPRESSION
     Dosage: 10 mg, QD
     Route: 048
     Dates: start: 20120823
  6. CIPRALEX [Suspect]
     Dosage: Overdose: amount unknown
     Route: 048
     Dates: start: 20120824
  7. DIAZEPAM [Concomitant]
     Dosage: 5 mg,
     Route: 048

REACTIONS (2)
  - Accidental death [Fatal]
  - Overdose [Fatal]
